FAERS Safety Report 11364568 (Version 3)
Quarter: 2015Q3

REPORT INFORMATION
  Report Type: Spontaneous
  Country: JP (occurrence: JP)
  Receive Date: 20150811
  Receipt Date: 20150827
  Transmission Date: 20151125
  Serious: Yes (Death, Other)
  Sender: FDA-Public Use
  Company Number: JP-GLAXOSMITHKLINE INC.-JP2015JPN113605

PATIENT
  Age: 68 Year
  Sex: Male

DRUGS (8)
  1. LEVODOPA [Concomitant]
     Active Substance: LEVODOPA
     Dosage: 700 MG, 1D
  2. ARICEPT [Concomitant]
     Active Substance: DONEPEZIL HYDROCHLORIDE
     Dosage: 10 MG, 1D
  3. DEPAS [Concomitant]
     Active Substance: ETIZOLAM
     Dosage: 1 MG, 1D
  4. RISUMIC [Concomitant]
     Active Substance: AMEZINIUM METILSULFATE
     Dosage: 20 MG, 1D
  5. FP (JAPAN) [Concomitant]
     Dosage: 5 MG, 1D
  6. LENDORMIN [Concomitant]
     Active Substance: BROTIZOLAM
     Dosage: 0.25 MG, 1D
  7. REQUIP [Suspect]
     Active Substance: ROPINIROLE HYDROCHLORIDE
     Indication: PARKINSON^S DISEASE
     Dosage: 8 MG, QD
     Route: 048
     Dates: start: 201212, end: 20150625
  8. DOPS (JAPAN) [Concomitant]
     Dosage: 600 MG, 1D

REACTIONS (2)
  - Completed suicide [Fatal]
  - Coma [Unknown]

NARRATIVE: CASE EVENT DATE: 20150625
